FAERS Safety Report 13398149 (Version 4)
Quarter: 2017Q2

REPORT INFORMATION
  Report Type: Spontaneous
  Country: US (occurrence: US)
  Receive Date: 20170403
  Receipt Date: 20170615
  Transmission Date: 20170830
  Serious: Yes (Death, Hospitalization, Other)
  Sender: FDA-Public Use
  Company Number: US-SAOL THERAPEUTICS-2017SAO00592

PATIENT
  Age: 60 Year
  Sex: Female
  Weight: 63.49 kg

DRUGS (4)
  1. BACLOFEN. [Suspect]
     Active Substance: BACLOFEN
     Indication: MUSCLE SPASTICITY
     Dosage: 125 ?G, \DAY
     Route: 037
  2. MS CONTIN [Concomitant]
     Active Substance: MORPHINE SULFATE
  3. BACLOFEN. [Suspect]
     Active Substance: BACLOFEN
     Indication: MULTIPLE SCLEROSIS
     Dosage: 110 ?G, UNK
  4. TEGRETOL [Concomitant]
     Active Substance: CARBAMAZEPINE

REACTIONS (6)
  - Urosepsis [Fatal]
  - Dysphagia [Unknown]
  - Pneumonia aspiration [Fatal]
  - Depressed level of consciousness [Unknown]
  - Mental status changes [Unknown]
  - Lethargy [Unknown]

NARRATIVE: CASE EVENT DATE: 201703
